FAERS Safety Report 8897138 (Version 2)
Quarter: 2013Q1

REPORT INFORMATION
  Report Type: Spontaneous
  Country: FR (occurrence: None)
  Receive Date: 20121105
  Receipt Date: 20130123
  Transmission Date: 20140127
  Serious: Yes (Other)
  Sender: FDA-Public Use
  Company Number: 2012FR0351

PATIENT
  Age: 40 Year
  Sex: Female
  Weight: 58 kg

DRUGS (1)
  1. KINERET [Suspect]
     Dosage: (100 MG, 1 IN 1 D)
     Route: 058
     Dates: start: 201207

REACTIONS (5)
  - Haemorrhagic anaemia [None]
  - Ulcer [None]
  - Hypothyroidism [None]
  - Oesophagitis [None]
  - Abdominal pain upper [None]
